FAERS Safety Report 13834108 (Version 2)
Quarter: 2017Q4

REPORT INFORMATION
  Report Type: Report from Study
  Country: JP (occurrence: JP)
  Receive Date: 20170804
  Receipt Date: 20171024
  Transmission Date: 20180320
  Serious: Yes (Other)
  Sender: FDA-Public Use
  Company Number: JP-VIFOR (INTERNATIONAL) INC.-VIT-2017-08214

PATIENT
  Age: 72 Year
  Sex: Female
  Weight: 49 kg

DRUGS (14)
  1. ZACRAS COMBINATION [Concomitant]
     Route: 048
     Dates: start: 20160629
  2. EPOGIN [Concomitant]
     Active Substance: ERYTHROPOIETIN
     Dates: end: 20160715
  3. EPOGIN [Concomitant]
     Active Substance: ERYTHROPOIETIN
     Dates: start: 20161026, end: 20161120
  4. CALTAN [Concomitant]
     Active Substance: CALCIUM CARBONATE
     Indication: HYPERPHOSPHATAEMIA
     Route: 048
  5. EPOGIN [Concomitant]
     Active Substance: ERYTHROPOIETIN
     Dates: start: 20160718
  6. EPOGIN [Concomitant]
     Active Substance: ERYTHROPOIETIN
     Dates: start: 20161121
  7. MAINTATE [Concomitant]
     Active Substance: BISOPROLOL FUMARATE
     Route: 048
  8. VELPHORO [Suspect]
     Active Substance: FERRIC OXYHYDROXIDE
     Indication: HYPERPHOSPHATAEMIA
     Route: 048
     Dates: start: 20160617, end: 20170420
  9. CRESTOR [Concomitant]
     Active Substance: ROSUVASTATIN CALCIUM
     Route: 048
  10. AZILVA [Concomitant]
     Active Substance: AZILSARTAN KAMEDOXOMIL
     Route: 048
  11. TRAZENTA [Concomitant]
     Active Substance: LINAGLIPTIN
     Route: 048
  12. REMITCH [Concomitant]
     Active Substance: NALFURAFINE HYDROCHLORIDE
     Route: 048
     Dates: start: 20160707
  13. EPOGIN [Concomitant]
     Active Substance: ERYTHROPOIETIN
     Dates: start: 20160812, end: 20161025
  14. ZACRAS COMBINATION [Concomitant]
     Dosage: 1TABLET
     Route: 048
     Dates: end: 20160728

REACTIONS (2)
  - Serum ferritin increased [Recovered/Resolved]
  - Dementia [Recovered/Resolved]

NARRATIVE: CASE EVENT DATE: 20160704
